FAERS Safety Report 9098704 (Version 1)
Quarter: 2013Q1

REPORT INFORMATION
  Report Type: Spontaneous
  Country: US (occurrence: US)
  Receive Date: 20130213
  Receipt Date: 20130213
  Transmission Date: 20140127
  Serious: Yes (Hospitalization, Other)
  Sender: FDA-Public Use
  Company Number: US-AMGEN-USASP2013008674

PATIENT
  Age: 57 Year
  Sex: Female

DRUGS (1)
  1. ENBREL [Suspect]
     Indication: RHEUMATOID ARTHRITIS
     Dosage: 25 MG, 2 TIMES/WK
     Dates: start: 20000201

REACTIONS (3)
  - Cerebrovascular accident [Recovered/Resolved with Sequelae]
  - Carotid artery stenosis [Not Recovered/Not Resolved]
  - Visual impairment [Not Recovered/Not Resolved]
